FAERS Safety Report 6161139-6 (Version None)
Quarter: 2009Q2

REPORT INFORMATION
  Report Type: 
  Country: None (occurrence: None)
  Receive Date: 20090417
  Receipt Date: 20090417
  Transmission Date: 20091009
  Serious: No
  Sender: FDA-Public Use
  Company Number: None

PATIENT
  Age: 78 Year
  Sex: Female
  Weight: 68.0396 kg

DRUGS (1)
  1. ACTONEL [Suspect]
     Indication: OSTEOPOROSIS
     Dosage: 120MG 1 A MO.
     Dates: start: 20090102, end: 20090105

REACTIONS (5)
  - HYPOPHAGIA [None]
  - MASTICATION DISORDER [None]
  - PAIN IN JAW [None]
  - TOOTH DISORDER [None]
  - TOOTHACHE [None]
